FAERS Safety Report 12779953 (Version 2)
Quarter: 2016Q4

REPORT INFORMATION
  Report Type: Spontaneous
  Country: US (occurrence: US)
  Receive Date: 20160926
  Receipt Date: 20161109
  Transmission Date: 20170207
  Serious: No
  Sender: FDA-Public Use
  Company Number: US-PFIZER INC-2016442666

PATIENT
  Age: 84 Year
  Sex: Female
  Weight: 57 kg

DRUGS (1)
  1. METOPROLOL TARTRATE. [Suspect]
     Active Substance: METOPROLOL TARTRATE
     Indication: ATRIAL FIBRILLATION
     Dosage: 25 MG, AS NEEDED WHEN HER PULSE RATE IS UP TO 136

REACTIONS (1)
  - Nausea [Unknown]
